FAERS Safety Report 9269096 (Version 1)
Quarter: 2013Q2

REPORT INFORMATION
  Report Type: Spontaneous
  Country: ZA (occurrence: ZA)
  Receive Date: 20130503
  Receipt Date: 20130503
  Transmission Date: 20140414
  Serious: Yes (Death)
  Sender: FDA-Public Use
  Company Number: ZA-AMGEN-ZAFSP2013030403

PATIENT
  Age: 68 Year
  Sex: Male

DRUGS (13)
  1. ENBREL [Suspect]
     Indication: RHEUMATOID ARTHRITIS
     Dosage: 50 MG, WEEKLY
     Dates: start: 200701
  2. METHOTREXATE SODIUM [Concomitant]
     Dosage: 15 MG, WEEKLY
  3. FOLATE [Concomitant]
     Dosage: 5 MG, 1X/DAY
  4. CARLOC [Concomitant]
     Dosage: 25 MG, 1X/DAY
  5. ADCO-SIMVASTATIN [Concomitant]
     Dosage: 20 MG, 1X/DAY
  6. ADALAT XL [Concomitant]
     Dosage: 60 MG, 1X/DAY
  7. LASIX                              /00032601/ [Concomitant]
     Dosage: 40 MG, 2X/DAY
  8. PHARMAPRESS                        /00574902/ [Concomitant]
     Dosage: DF, 1X/DAY
  9. DISPRIN [Concomitant]
     Dosage: 100 MG, 1X/DAY
  10. SLOW-K [Concomitant]
     Dosage: 1 DF, 1X/DAY
  11. TREPILINE                          /00002201/ [Concomitant]
     Dosage: 25 MG, UNK
  12. ALZAM [Concomitant]
     Dosage: 0.5 MG, 1X/DAY
  13. TRAMAHEXAL [Concomitant]
     Dosage: 150 MG, 1X/DAY
     Route: 065

REACTIONS (1)
  - Death [Fatal]
